FAERS Safety Report 8957930 (Version 1)
Quarter: 2012Q4

REPORT INFORMATION
  Report Type: 
  Country: US (occurrence: US)
  Receive Date: 20121211
  Receipt Date: 20121211
  Transmission Date: 20130627
  Serious: No
  Sender: FDA-Public Use
  Company Number: US-ABBOTT-12P-163-0912858-00

PATIENT
  Age: 47 Year
  Sex: Female
  Weight: 51.3 kg

DRUGS (2)
  1. VICODIN [Suspect]
     Indication: PAIN
     Dates: start: 2011
  2. VICODIN ES [Suspect]
     Indication: FRACTURE

REACTIONS (2)
  - Drug ineffective [Not Recovered/Not Resolved]
  - Drug effect decreased [Not Recovered/Not Resolved]
